FAERS Safety Report 5196245-6 (Version None)
Quarter: 2006Q4

REPORT INFORMATION
  Report Type: 
  Country: None (occurrence: None)
  Receive Date: 20061222
  Receipt Date: 20061211
  Transmission Date: 20070319
  Serious: Yes (Hospitalization)
  Sender: FDA-Public Use
  Company Number: 2006-02557

PATIENT
  Age: 68 Year
  Sex: Female
  Weight: 60 kg

DRUGS (6)
  1. VELCADE [Suspect]
     Indication: MULTIPLE MYELOMA
     Dosage: 2.20 MG, INTRAVENOUS
     Route: 042
     Dates: start: 20060220, end: 20060223
  2. ADP (PAMIDRONATE DISODIUM) [Concomitant]
  3. ARANESP [Concomitant]
  4. LEVOTHYROXINE SODIUM [Concomitant]
  5. NEXIUM [Concomitant]
  6. THIAMINE (THIAMINE) [Concomitant]

REACTIONS (2)
  - ESCHERICHIA SEPSIS [None]
  - PNEUMONIA KLEBSIELLA [None]
